FAERS Safety Report 5491919-1 (Version None)
Quarter: 2007Q4

REPORT INFORMATION
  Report Type: 
  Country: None (occurrence: None)
  Receive Date: 20071022
  Receipt Date: 20071022
  Transmission Date: 20080405
  Serious: Yes (Other)
  Sender: FDA-Public Use
  Company Number: A0688815A

PATIENT

DRUGS (1)
  1. ALLI [Suspect]
     Indication: WEIGHT LOSS DIET
     Route: 048
     Dates: start: 20071012

REACTIONS (3)
  - FAECAL INCONTINENCE [None]
  - GASTROINTESTINAL DISORDER [None]
  - RECTAL DISCHARGE [None]
